FAERS Safety Report 4361716-9 (Version None)
Quarter: 2004Q2

REPORT INFORMATION
  Report Type: 
  Country: None (occurrence: None)
  Receive Date: 20040521
  Receipt Date: 20040426
  Transmission Date: 20050107
  Serious: Yes (Other)
  Sender: FDA-Public Use
  Company Number: US-GLAXOSMITHKLINE-A0509158A

PATIENT
  Age: 50 Year
  Sex: Female

DRUGS (4)
  1. WELLBUTRIN XL [Suspect]
     Indication: DEPRESSION
     Dosage: 450MG PER DAY
     Route: 048
     Dates: start: 20040304, end: 20040426
  2. ULTRAM [Concomitant]
  3. CELEBREX [Concomitant]
  4. AMBIEN [Concomitant]
     Route: 065

REACTIONS (1)
  - URTICARIA [None]
